FAERS Safety Report 25929186 (Version 1)
Quarter: 2025Q4

REPORT INFORMATION
  Report Type: Spontaneous
  Country: EU (occurrence: EU)
  Receive Date: 20251016
  Receipt Date: 20251016
  Transmission Date: 20260117
  Serious: Yes (Other)
  Sender: ACCORD
  Company Number: None

PATIENT
  Age: 76 Year
  Sex: Male
  Weight: 68 kg

DRUGS (2)
  1. GEMCITABINE [Suspect]
     Active Substance: GEMCITABINE
     Indication: Product used for unknown indication
     Dates: start: 20240102, end: 20240102
  2. CARBOPLATIN [Suspect]
     Active Substance: CARBOPLATIN
     Indication: Product used for unknown indication
     Dates: start: 20240102, end: 20240102

REACTIONS (2)
  - Asthenia [Unknown]
  - Dehydration [Unknown]

NARRATIVE: CASE EVENT DATE: 20240108
